FAERS Safety Report 20663722 (Version 1)
Quarter: 2022Q2

REPORT INFORMATION
  Report Type: Spontaneous
  Country: US (occurrence: None)
  Receive Date: 20220401
  Receipt Date: 20220401
  Transmission Date: 20220721
  Serious: Yes (Hospitalization)
  Sender: FDA-Public Use
  Company Number: None

PATIENT
  Sex: Female

DRUGS (1)
  1. XELJANZ XR [Suspect]
     Active Substance: TOFACITINIB CITRATE
     Indication: Ankylosing spondylitis
     Dosage: FREQUENCY : DAILY;?
     Route: 048
     Dates: start: 20211101

REACTIONS (6)
  - Dysarthria [None]
  - Headache [None]
  - Tremor [None]
  - Tremor [None]
  - Therapy cessation [None]
  - Seizure [None]
